FAERS Safety Report 10778974 (Version 1)
Quarter: 2015Q1

REPORT INFORMATION
  Report Type: Spontaneous
  Country: US (occurrence: None)
  Receive Date: 20150206
  Receipt Date: 20150206
  Transmission Date: 20150721
  Serious: Yes (Other)
  Sender: FDA-Public Use
  Company Number: ADR-2015-00210

PATIENT
  Age: 24 Year
  Sex: Male

DRUGS (1)
  1. LIORESAL [Suspect]
     Active Substance: BACLOFEN
     Indication: MUSCLE SPASTICITY

REACTIONS (5)
  - Implant site extravasation [None]
  - Cerebrospinal fluid leakage [None]
  - Medical device complication [None]
  - Drug ineffective [None]
  - Incision site swelling [None]

NARRATIVE: CASE EVENT DATE: 20150123
